FAERS Safety Report 9357352 (Version 2)
Quarter: 2013Q3

REPORT INFORMATION
  Report Type: Spontaneous
  Country: IE (occurrence: IE)
  Receive Date: 20130620
  Receipt Date: 20130710
  Transmission Date: 20140515
  Serious: Yes (Hospitalization)
  Sender: FDA-Public Use
  Company Number: IE-MPIJNJ-2013-03496

PATIENT
  Sex: 0

DRUGS (6)
  1. VELCADE [Suspect]
     Indication: PLASMA CELL MYELOMA
     Dosage: 1.3 MG/M2, 2/WEEK
     Route: 058
     Dates: start: 20130322
  2. DEXAMETHASONE [Suspect]
     Indication: PLASMA CELL MYELOMA
     Dosage: 40 MG, 2/WEEK
     Route: 048
     Dates: start: 20130322
  3. AMLODIPINE [Concomitant]
     Dosage: UNK
     Dates: start: 2012, end: 20130419
  4. OMEPRAZOLE [Concomitant]
     Dosage: UNK
     Dates: start: 2008
  5. CYCLIZINE [Concomitant]
     Dosage: UNK
     Dates: start: 20130415, end: 20130426
  6. LEXAPRO [Concomitant]
     Dosage: UNK
     Dates: start: 2012

REACTIONS (7)
  - Head injury [Unknown]
  - Orthostatic hypotension [Recovered/Resolved]
  - Fall [Unknown]
  - Asthenia [Unknown]
  - Abdominal pain [Unknown]
  - Vomiting [None]
  - Nausea [None]
